FAERS Safety Report 13961152 (Version 1)
Quarter: 2017Q3

REPORT INFORMATION
  Report Type: Spontaneous
  Country: CA (occurrence: CA)
  Receive Date: 20170912
  Receipt Date: 20170912
  Transmission Date: 20171128
  Serious: Yes (Hospitalization, Other)
  Sender: FDA-Public Use
  Company Number: CA-ASTRAZENECA-2017SE91465

PATIENT
  Age: 68 Year
  Sex: Female

DRUGS (1)
  1. SYMBICORT [Suspect]
     Active Substance: BUDESONIDE\FORMOTEROL FUMARATE DIHYDRATE
     Dosage: UNKNOWN UNKNOWN
     Route: 055

REACTIONS (9)
  - Blood glucose increased [Unknown]
  - Fungal infection [Unknown]
  - Pulmonary fibrosis [Unknown]
  - Fatigue [Unknown]
  - Dyspnoea exertional [Unknown]
  - Malaise [Unknown]
  - Pneumonia viral [Unknown]
  - Sarcoidosis [Unknown]
  - Drug ineffective [Unknown]
